FAERS Safety Report 11498317 (Version 1)
Quarter: 2015Q3

REPORT INFORMATION
  Report Type: Spontaneous
  Country: FR (occurrence: FR)
  Receive Date: 20150911
  Receipt Date: 20150911
  Transmission Date: 20151125
  Serious: Yes (Other)
  Sender: FDA-Public Use
  Company Number: FR-ASTRAZENECA-2015SE86878

PATIENT
  Age: 76 Year
  Sex: Female

DRUGS (6)
  1. IXPRIM [Suspect]
     Active Substance: ACETAMINOPHEN\TRAMADOL HYDROCHLORIDE
     Indication: PAIN
     Route: 048
     Dates: start: 20150722, end: 20150723
  2. IXPRIM [Suspect]
     Active Substance: ACETAMINOPHEN\TRAMADOL HYDROCHLORIDE
     Indication: PAIN
     Dosage: 2 TABLETS OF IXPRIM INSTEAD OF 1 TABLET
     Route: 048
  3. INEXIUM [Suspect]
     Active Substance: ESOMEPRAZOLE
     Indication: PAIN
     Route: 048
     Dates: start: 20150722, end: 20150723
  4. BIPROFENID [Concomitant]
     Active Substance: KETOPROFEN
     Indication: PAIN
  5. IXPRIM [Suspect]
     Active Substance: ACETAMINOPHEN\TRAMADOL HYDROCHLORIDE
     Indication: PAIN
     Route: 048
  6. INEXIUM [Suspect]
     Active Substance: ESOMEPRAZOLE
     Indication: PAIN
     Dosage: 2 TABLETS OF INEXIUM INSTEAD OF 1 TABLET
     Route: 048
     Dates: start: 20150723

REACTIONS (4)
  - Incorrect dose administered [Recovered/Resolved]
  - Intentional product misuse [Unknown]
  - Circumstance or information capable of leading to medication error [Recovered/Resolved]
  - Vomiting [Recovered/Resolved]

NARRATIVE: CASE EVENT DATE: 20150723
